FAERS Safety Report 5644080-4 (Version None)
Quarter: 2008Q1

REPORT INFORMATION
  Report Type: 
  Country: None (occurrence: None)
  Receive Date: 20080226
  Receipt Date: 20080213
  Transmission Date: 20080703
  Serious: Yes (Hospitalization)
  Sender: FDA-Public Use
  Company Number: B0509156A

PATIENT
  Age: 50 Year
  Sex: Female

DRUGS (1)
  1. LAMICTAL [Suspect]
     Dates: start: 20050501

REACTIONS (3)
  - ABASIA [None]
  - DRUG DISPENSING ERROR [None]
  - STEVENS-JOHNSON SYNDROME [None]
